FAERS Safety Report 11324987 (Version 1)
Quarter: 2015Q3

REPORT INFORMATION
  Report Type: Spontaneous
  Country: US (occurrence: US)
  Receive Date: 20150730
  Receipt Date: 20150730
  Transmission Date: 20151125
  Serious: No
  Sender: FDA-Public Use
  Company Number: US-PFIZER INC-2015249895

PATIENT
  Sex: Female

DRUGS (13)
  1. AMOXICILLIN. [Suspect]
     Active Substance: AMOXICILLIN
  2. METRONIDAZOLE. [Suspect]
     Active Substance: METRONIDAZOLE
  3. CEFDINIR. [Suspect]
     Active Substance: CEFDINIR
  4. CIPROFLOXACIN. [Suspect]
     Active Substance: CIPROFLOXACIN
  5. PLAQUENIL [Suspect]
     Active Substance: HYDROXYCHLOROQUINE SULFATE
  6. ULTRAM [Suspect]
     Active Substance: TRAMADOL HYDROCHLORIDE
  7. NEOSPORIN [Suspect]
     Active Substance: BACITRACIN ZINC\NEOMYCIN SULFATE\POLYMYXIN B SULFATE
     Dosage: UNK
  8. AZASITE [Suspect]
     Active Substance: AZITHROMYCIN MONOHYDRATE
     Dosage: UNK
     Route: 047
  9. XANAX [Suspect]
     Active Substance: ALPRAZOLAM
  10. CLEOCIN [Suspect]
     Active Substance: CLINDAMYCIN PHOSPHATE
  11. OXYCONTIN [Suspect]
     Active Substance: OXYCODONE HYDROCHLORIDE
     Dosage: UNK
  12. KETOROLAC [Suspect]
     Active Substance: KETOROLAC\KETOROLAC TROMETHAMINE
  13. CODEINE [Suspect]
     Active Substance: CODEINE

REACTIONS (1)
  - Drug hypersensitivity [Not Recovered/Not Resolved]
